FAERS Safety Report 20176543 (Version 1)
Quarter: 2021Q4

REPORT INFORMATION
  Report Type: Spontaneous
  Country: US (occurrence: US)
  Receive Date: 20211213
  Receipt Date: 20211213
  Transmission Date: 20220303
  Serious: No
  Sender: FDA-Public Use
  Company Number: US-MEITHEAL-2021MPSPO00070

PATIENT
  Sex: Female

DRUGS (2)
  1. ENOXAPARIN SODIUM [Suspect]
     Active Substance: ENOXAPARIN SODIUM
     Indication: Product used for unknown indication
     Dosage: 120 MG/0.8 ML SYRINGE, 10 SYRINGES
  2. ENOXAPARIN SODIUM [Suspect]
     Active Substance: ENOXAPARIN SODIUM

REACTIONS (3)
  - Device defective [Unknown]
  - Underdose [Unknown]
  - Device malfunction [Unknown]
